FAERS Safety Report 25085250 (Version 1)
Quarter: 2025Q1

REPORT INFORMATION
  Report Type: Other
  Country: CA (occurrence: CA)
  Receive Date: 20250317
  Receipt Date: 20250317
  Transmission Date: 20250408
  Serious: Yes (Other)
  Sender: APOTEX
  Company Number: CA-APOTEX-2025AP003130

PATIENT
  Sex: Male

DRUGS (2)
  1. CANDESARTAN [Suspect]
     Active Substance: CANDESARTAN
     Indication: Hypertension
     Dosage: 8 MILLIGRAM, QD
     Route: 048
  2. ROSUVASTATIN [Suspect]
     Active Substance: ROSUVASTATIN
     Indication: Hyperlipidaemia
     Dosage: 10 MILLIGRAM, QD
     Route: 048

REACTIONS (2)
  - Product substitution issue [Unknown]
  - Myalgia [Unknown]
